FAERS Safety Report 23637190 (Version 1)
Quarter: 2024Q1

REPORT INFORMATION
  Report Type: Spontaneous
  Country: US (occurrence: US)
  Receive Date: 20240315
  Receipt Date: 20240315
  Transmission Date: 20240410
  Serious: No
  Sender: FDA-Public Use
  Company Number: US-PFIZER INC-PV202400034884

PATIENT
  Age: 67 Year
  Sex: Male

DRUGS (3)
  1. VYNDAMAX [Suspect]
     Active Substance: TAFAMIDIS
     Indication: Atrial fibrillation
     Dosage: 61 MG
  2. XARELTO [Concomitant]
     Active Substance: RIVAROXABAN
     Indication: Haemorrhage
     Dosage: UNK
  3. MIDODRINE [Concomitant]
     Active Substance: MIDODRINE
     Dosage: UNK, 3X/DAY

REACTIONS (3)
  - Oedema peripheral [Unknown]
  - Dizziness [Not Recovered/Not Resolved]
  - Off label use [Unknown]
